FAERS Safety Report 24323013 (Version 4)
Quarter: 2025Q1

REPORT INFORMATION
  Report Type: Report from Study
  Country: CA (occurrence: CA)
  Receive Date: 20240916
  Receipt Date: 20250327
  Transmission Date: 20250409
  Serious: Yes (Hospitalization, Other)
  Sender: GLAXOSMITHKLINE
  Company Number: CA-GLAXOSMITHKLINE-CA2024111944

PATIENT

DRUGS (4)
  1. MEPOLIZUMAB [Suspect]
     Active Substance: MEPOLIZUMAB
     Indication: Asthma
     Dosage: 100 MG, Q4W
     Route: 058
     Dates: start: 20240528
  2. VENTOLIN [Suspect]
     Active Substance: ALBUTEROL SULFATE
     Indication: Dyspnoea
     Route: 055
  3. PREDNISONE [Concomitant]
     Active Substance: PREDNISONE
     Indication: Pulmonary congestion
  4. PREDNISONE [Concomitant]
     Active Substance: PREDNISONE
     Dates: start: 202409

REACTIONS (10)
  - Hospitalisation [Unknown]
  - Pneumonia [Unknown]
  - Pneumonitis [Unknown]
  - Pulmonary congestion [Unknown]
  - Lung disorder [Unknown]
  - Illness [Unknown]
  - Asthma [Not Recovered/Not Resolved]
  - Therapeutic response shortened [Unknown]
  - Inappropriate schedule of product administration [Unknown]
  - Product use in unapproved indication [Unknown]

NARRATIVE: CASE EVENT DATE: 20250201
